FAERS Safety Report 5968102-6 (Version None)
Quarter: 2008Q4

REPORT INFORMATION
  Report Type: 
  Country: None (occurrence: None)
  Receive Date: 20081121
  Receipt Date: 20081111
  Transmission Date: 20090506
  Serious: No
  Sender: FDA-Public Use
  Company Number: 08H-087-0315181-00

PATIENT
  Age: 85 Year
  Sex: Male
  Weight: 54 kg

DRUGS (13)
  1. PRECEDEX [Suspect]
     Indication: SEDATION
     Dosage: 0.3 MCG/KG/HR, CONTINUOUS, INTRAVENOUS
     Route: 042
     Dates: start: 20070827, end: 20070828
  2. PROPOFOL [Concomitant]
  3. FENTANYL CITRATE [Concomitant]
  4. VECURONIUM BROMIDE [Concomitant]
  5. SEVOFLURANE [Concomitant]
  6. EPHEDRINE HCL 1PC SOL [Concomitant]
  7. DOPAMINE HCL [Concomitant]
  8. FLURBIPROFEN AXETIL (FLURBIPROFEN AXETIL) [Concomitant]
  9. ROPIVACAINE HYDROCHLORIDE (ROPIVACAINE HYDROCHLORIDE) [Concomitant]
  10. NAFAMOSTAT MESILATE (NAFAMOSTAT MESILATE) [Concomitant]
  11. SIVELESTAT (SIVELESTAT) [Concomitant]
  12. LANSOPRAZOLE [Concomitant]
  13. PLASMA [Concomitant]

REACTIONS (4)
  - ALANINE AMINOTRANSFERASE INCREASED [None]
  - ASPARTATE AMINOTRANSFERASE INCREASED [None]
  - BLOOD ALBUMIN DECREASED [None]
  - PROTHROMBIN TIME PROLONGED [None]
